FAERS Safety Report 8473549-2 (Version None)
Quarter: 2012Q2

REPORT INFORMATION
  Report Type: 
  Country: None (occurrence: None)
  Receive Date: 20120621
  Receipt Date: 20120608
  Transmission Date: 20120825
  Serious: Yes (Hospitalization)
  Sender: FDA-Public Use
  Company Number: IPC201206-000252

PATIENT
  Age: 56 Year
  Sex: Female

DRUGS (5)
  1. AMITRIPTYLINE HCL [Suspect]
     Indication: DEPRESSION
  2. METOPROLOL TARTRATE [Suspect]
     Indication: HYPERTENSION
  3. CITALOPRAM HYDROBROMIDE [Suspect]
     Indication: DEPRESSION
  4. NIFEDIPINE [Suspect]
     Indication: HYPERTENSION
  5. INTRALIPID 10% [Suspect]
     Indication: SHOCK
     Dosage: 20% (20 GM/DL), SINGLE BOLUS, INTRAVENOUS
     Route: 042

REACTIONS (7)
  - HYPOGLYCAEMIA [None]
  - CARDIOTOXICITY [None]
  - TOXICITY TO VARIOUS AGENTS [None]
  - INJURY [None]
  - SHOCK [None]
  - CARDIAC ARREST [None]
  - MULTIPLE DRUG OVERDOSE [None]
